FAERS Safety Report 23073752 (Version 1)
Quarter: 2023Q4

REPORT INFORMATION
  Report Type: Spontaneous
  Country: AE (occurrence: AE)
  Receive Date: 20231017
  Receipt Date: 20231017
  Transmission Date: 20240109
  Serious: Yes (Life-Threatening, Hospitalization, Other)
  Sender: FDA-Public Use
  Company Number: AE-MLMSERVICE-20230927-4564285-1

PATIENT

DRUGS (13)
  1. LACOSAMIDE [Suspect]
     Active Substance: LACOSAMIDE
     Indication: Seizure
     Dosage: INCREASED, LOADED DOSE, MAINTENANCE DOSE
     Route: 065
  2. LEVETIRACETAM [Suspect]
     Active Substance: LEVETIRACETAM
     Indication: Seizure
     Dosage: INCREASED
     Route: 042
  3. CARBIDOPA AND LEVODOPA [Suspect]
     Active Substance: CARBIDOPA\LEVODOPA
     Indication: Parkinson^s disease
     Dosage: PROGRESSIVELY INCREASED TO 25/100 FOUR TIMES DAILY
     Route: 065
  4. CLONAZEPAM [Suspect]
     Active Substance: CLONAZEPAM
     Indication: Partial seizures
     Dosage: INCREASED
     Route: 065
  5. PERAMPANEL [Suspect]
     Active Substance: PERAMPANEL
     Indication: Status epilepticus
     Route: 065
  6. PHENYTOIN [Suspect]
     Active Substance: PHENYTOIN
     Indication: Seizure
     Dosage: MAINTENANCE DOSE, LOADING DOSE
     Route: 065
  7. VALPROATE SODIUM [Suspect]
     Active Substance: VALPROATE SODIUM
     Indication: Status epilepticus
     Route: 065
  8. CEFTOLOZANE [Concomitant]
     Active Substance: CEFTOLOZANE
     Route: 065
  9. FENTANYL [Concomitant]
     Active Substance: FENTANYL
     Indication: Product used for unknown indication
     Route: 065
  10. AVIBACTAM [Concomitant]
     Active Substance: AVIBACTAM
     Route: 065
  11. PROPOFOL [Concomitant]
     Active Substance: PROPOFOL
     Indication: Product used for unknown indication
     Route: 065
  12. FLUCONAZOLE [Concomitant]
     Active Substance: FLUCONAZOLE
     Route: 065
  13. ERTAPENEM [Concomitant]
     Active Substance: ERTAPENEM
     Route: 065

REACTIONS (2)
  - Vitamin B6 deficiency [Recovered/Resolved]
  - Status epilepticus [Recovered/Resolved]
